FAERS Safety Report 13998783 (Version 1)
Quarter: 2017Q3

REPORT INFORMATION
  Report Type: Not Available
  Country: US (occurrence: US)
  Receive Date: 20170921
  Receipt Date: 20170921
  Transmission Date: 20171128
  Serious: No
  Sender: FDA-Public Use
  Company Number: US-NEUROCRINE BIOSCIENCES INC.-2017NBI00585

PATIENT
  Age: 60 Year
  Sex: Female

DRUGS (13)
  1. INGREZZA [Suspect]
     Active Substance: VALBENAZINE
     Route: 048
     Dates: start: 20170717, end: 20170720
  2. PERCOCET [Concomitant]
     Active Substance: ACETAMINOPHEN\OXYCODONE HYDROCHLORIDE
  3. LIPITOR [Concomitant]
     Active Substance: ATORVASTATIN CALCIUM
  4. METOPROLOL. [Concomitant]
     Active Substance: METOPROLOL
  5. GABAPENTIN. [Concomitant]
     Active Substance: GABAPENTIN
  6. VITAMIN D [Concomitant]
     Active Substance: CHOLECALCIFEROL
  7. OXYBUTYNIN [Concomitant]
     Active Substance: OXYBUTYNIN
  8. RISPERDAL [Concomitant]
     Active Substance: RISPERIDONE
  9. MYSOLINE [Concomitant]
     Active Substance: PRIMIDONE
  10. INGREZZA [Suspect]
     Active Substance: VALBENAZINE
     Indication: PRODUCT USED FOR UNKNOWN INDICATION
     Route: 048
     Dates: start: 20170710, end: 20170717
  11. CITALOPRAM [Concomitant]
     Active Substance: CITALOPRAM HYDROBROMIDE
  12. XANAX [Concomitant]
     Active Substance: ALPRAZOLAM
  13. ZETIA [Concomitant]
     Active Substance: EZETIMIBE

REACTIONS (3)
  - Fatigue [Recovered/Resolved]
  - Somnolence [Unknown]
  - Tremor [Recovered/Resolved]

NARRATIVE: CASE EVENT DATE: 20170714
